FAERS Safety Report 9430206 (Version 1)
Quarter: 2013Q3

REPORT INFORMATION
  Report Type: Spontaneous
  Country: US (occurrence: US)
  Receive Date: 20130730
  Receipt Date: 20130730
  Transmission Date: 20140515
  Serious: Yes (Other)
  Sender: FDA-Public Use
  Company Number: US-TEVA-421970USA

PATIENT
  Age: 81 Year
  Sex: Female

DRUGS (3)
  1. CLOPIDOGREL [Suspect]
     Indication: STENT PLACEMENT
     Route: 048
     Dates: start: 20130309, end: 2013
  2. CLOPIDOGREL [Suspect]
     Route: 048
     Dates: start: 20130724
  3. BABY ASPIRIN [Concomitant]
     Dosage: 2 EVERY DAY
     Route: 048

REACTIONS (10)
  - Blindness [Unknown]
  - Urine output decreased [Unknown]
  - Yellow skin [Unknown]
  - Pallor [Unknown]
  - Feeling abnormal [Unknown]
  - Vision blurred [Unknown]
  - Headache [Unknown]
  - Confusional state [Unknown]
  - Asthenia [Unknown]
  - Fatigue [Unknown]
